FAERS Safety Report 17579391 (Version 1)
Quarter: 2020Q1

REPORT INFORMATION
  Report Type: Spontaneous
  Country: US (occurrence: US)
  Receive Date: 20200325
  Receipt Date: 20200325
  Transmission Date: 20200409
  Serious: No
  Sender: FDA-Public Use
  Company Number: US-ALLERGAN-1910664US

PATIENT
  Sex: Female

DRUGS (30)
  1. DIVALPROEX SODIUM. [Concomitant]
     Active Substance: DIVALPROEX SODIUM
  2. FLUTICASONE PROPIONATE. [Concomitant]
     Active Substance: FLUTICASONE PROPIONATE
  3. CITALOPRAM [Concomitant]
     Active Substance: CITALOPRAM HYDROBROMIDE
  4. FIBER [Concomitant]
     Active Substance: PSYLLIUM HUSK
  5. FORTIFY PROBIOTICS [Concomitant]
     Active Substance: PROBIOTICS NOS
  6. PROLIA [Concomitant]
     Active Substance: DENOSUMAB
  7. QUETIAPINE FUMARATE. [Concomitant]
     Active Substance: QUETIAPINE FUMARATE
  8. SIMVASTATIN. [Concomitant]
     Active Substance: SIMVASTATIN
  9. METFORMIN HCL [Concomitant]
     Active Substance: METFORMIN HYDROCHLORIDE
  10. DOCQLACE [Concomitant]
     Active Substance: DOCUSATE SODIUM
  11. HYDROCODONE/ACETAMINOPHEN [Concomitant]
     Active Substance: ACETAMINOPHEN\HYDROCODONE
  12. SLEEP AID [Concomitant]
  13. TYLENOL [Concomitant]
     Active Substance: ACETAMINOPHEN
  14. ESTRACE [Concomitant]
     Active Substance: ESTRADIOL
     Indication: ATROPHIC VULVOVAGINITIS
     Dosage: PEA SIZE AMOUNT QM, W, F
  15. MAGNESIUM [Concomitant]
     Active Substance: MAGNESIUM
  16. NIACIN. [Concomitant]
     Active Substance: NIACIN
  17. SUCRALFATE. [Concomitant]
     Active Substance: SUCRALFATE
  18. FISH OIL [Concomitant]
     Active Substance: FISH OIL
  19. LORATADINE. [Concomitant]
     Active Substance: LORATADINE
  20. MORPHINE SULFATE. [Concomitant]
     Active Substance: MORPHINE SULFATE
  21. PANTOPRAZOLE SODIUM. [Concomitant]
     Active Substance: PANTOPRAZOLE SODIUM
  22. VITAMIN D3 [Concomitant]
     Active Substance: CHOLECALCIFEROL
  23. CYCLOBENZAPRINE. [Concomitant]
     Active Substance: CYCLOBENZAPRINE
  24. VITAMIN B12 [Concomitant]
     Active Substance: CYANOCOBALAMIN
  25. ASPIRIN (E.C.) [Concomitant]
     Active Substance: ASPIRIN
  26. CLONAZEPAM. [Concomitant]
     Active Substance: CLONAZEPAM
  27. CRANBERRY. [Concomitant]
     Active Substance: CRANBERRY
  28. OXYCODONE HYDROCHLORIDE. [Concomitant]
     Active Substance: OXYCODONE HYDROCHLORIDE
  29. TRIMETHOPRIM. [Concomitant]
     Active Substance: TRIMETHOPRIM
     Indication: ATROPHIC VULVOVAGINITIS
  30. OXYBUTYNIN UNK [Suspect]
     Active Substance: OXYBUTYNIN
     Indication: PRODUCT USED FOR UNKNOWN INDICATION
     Route: 065

REACTIONS (1)
  - Drug ineffective [Unknown]
